FAERS Safety Report 9326803 (Version 1)
Quarter: 2013Q2

REPORT INFORMATION
  Report Type: Spontaneous
  Country: US (occurrence: US)
  Receive Date: 20130604
  Receipt Date: 20130604
  Transmission Date: 20140414
  Serious: No
  Sender: FDA-Public Use
  Company Number: US-AMGEN-USASP2013033737

PATIENT
  Age: 32 Year
  Sex: Female

DRUGS (1)
  1. ENBREL [Suspect]
     Indication: RHEUMATOID ARTHRITIS
     Dosage: 50 MG, QWK
     Dates: start: 20081216, end: 20130509

REACTIONS (5)
  - Respiratory tract congestion [Not Recovered/Not Resolved]
  - Oropharyngeal pain [Not Recovered/Not Resolved]
  - Cough [Not Recovered/Not Resolved]
  - Ear discomfort [Not Recovered/Not Resolved]
  - Infection [Not Recovered/Not Resolved]
